FAERS Safety Report 5639112-3 (Version None)
Quarter: 2008Q1

REPORT INFORMATION
  Report Type: 
  Country: None (occurrence: None)
  Receive Date: 20080226
  Receipt Date: 20080214
  Transmission Date: 20080703
  Serious: Yes (Life-Threatening)
  Sender: FDA-Public Use
  Company Number: ES-ELI_LILLY_AND_COMPANY-ES200802003365

PATIENT
  Age: 14 Year
  Sex: Male

DRUGS (1)
  1. STRATTERA [Suspect]
     Indication: ATTENTION DEFICIT/HYPERACTIVITY DISORDER
     Dosage: 60 MG, UNKNOWN
     Route: 048
     Dates: start: 20071010, end: 20071127

REACTIONS (1)
  - SELF-INJURIOUS IDEATION [None]
